FAERS Safety Report 11071452 (Version 1)
Quarter: 2015Q2

REPORT INFORMATION
  Report Type: Spontaneous
  Country: US (occurrence: None)
  Receive Date: 20150424
  Receipt Date: 20150424
  Transmission Date: 20150821
  Serious: Yes (Other)
  Sender: FDA-Public Use
  Company Number: 2015COV00086

PATIENT
  Age: 42 Year
  Sex: Male

DRUGS (27)
  1. PLAQUENIL [Suspect]
     Active Substance: HYDROXYCHLOROQUINE SULFATE
     Dates: start: 198910, end: 199009
  2. ORENCIA (ABATACEPT) [Concomitant]
  3. CALCIUM [Concomitant]
     Active Substance: CALCIUM
  4. LOTEMAX OPHTHALMIC SOLUTION(LOTEPRODENOL ETABONATE) [Concomitant]
  5. MULTIVITAMINS [Concomitant]
     Active Substance: VITAMINS
  6. HUMIRA [Concomitant]
     Active Substance: ADALIMUMAB
  7. PREDNISONE. [Concomitant]
     Active Substance: PREDNISONE
  8. JALYN (DUTASTERIDE/TAMSULOSIN) [Concomitant]
  9. ADVAIR (FLUTICASONE PROPIONATE/SALMETEROL XINAFOATE) [Concomitant]
  10. TIMOLOL [Concomitant]
     Active Substance: TIMOLOL
  11. VIOXX [Concomitant]
     Active Substance: ROFECOXIB
  12. BENZOCAINE. [Concomitant]
     Active Substance: BENZOCAINE
  13. MYOCHRYSINE (SODIUM AUROTHIOMALATE) [Concomitant]
  14. DICLOFENACE SODIUM [Concomitant]
  15. BUDESONIDE. [Concomitant]
     Active Substance: BUDESONIDE
  16. NASONEX SPRAY (MOMETASONE FUROATE) [Concomitant]
  17. PRILOSEC (OMEPRAZOLE) [Concomitant]
     Active Substance: OMEPRAZOLE MAGNESIUM
  18. RITUXIMAB [Concomitant]
     Active Substance: RITUXIMAB
  19. ENBREL (ENTANERCPT) [Concomitant]
  20. PULMICORT NASAL (BUDESONIDE) [Concomitant]
  21. FOLIC ACID. [Suspect]
     Active Substance: FOLIC ACID
     Route: 048
     Dates: start: 199505, end: 201406
  22. UROXATROL [Concomitant]
  23. PRED-FORTE (PREDNISOLONE ACETATE) [Concomitant]
  24. FLOVENT [Concomitant]
     Active Substance: FLUTICASONE PROPIONATE
  25. NAPROXEN. [Concomitant]
     Active Substance: NAPROXEN
  26. METHOTREXATE [Concomitant]
     Active Substance: METHOTREXATE
  27. ZANTAC [Concomitant]
     Active Substance: RANITIDINE HYDROCHLORIDE

REACTIONS (5)
  - Sinus operation [None]
  - Colonoscopy [None]
  - Sleep apnoea syndrome [None]
  - Interstitial lung disease [None]
  - Retinal vein occlusion [None]

NARRATIVE: CASE EVENT DATE: 1989
